FAERS Safety Report 4403536-2 (Version None)
Quarter: 2004Q3

REPORT INFORMATION
  Report Type: 
  Country: None (occurrence: None)
  Receive Date: 20040721
  Receipt Date: 20040617
  Transmission Date: 20050211
  Serious: Yes (Hospitalization)
  Sender: FDA-Public Use
  Company Number: DE-BRISTOL-MYERS SQUIBB COMPANY-12623013

PATIENT
  Age: 79 Year
  Sex: Female
  Weight: 58 kg

DRUGS (6)
  1. GLUCOPHAGE [Suspect]
     Indication: DIABETES MELLITUS NON-INSULIN-DEPENDENT
  2. ASPIRIN [Concomitant]
     Route: 048
  3. GLUCOBAY [Concomitant]
  4. LASIX [Concomitant]
  5. CLEMASTINE FUMARATE [Concomitant]
  6. ZOCOR [Concomitant]

REACTIONS (14)
  - ABDOMINAL ADHESIONS [None]
  - ABDOMINAL RIGIDITY [None]
  - CARDIOVASCULAR DISORDER [None]
  - DISORIENTATION [None]
  - DRUG LEVEL ABOVE THERAPEUTIC [None]
  - HAEMODIALYSIS [None]
  - HAEMODYNAMIC INSTABILITY [None]
  - HYPOGLYCAEMIA [None]
  - HYPOTHERMIA [None]
  - LACTIC ACIDOSIS [None]
  - MARKEDLY REDUCED DIETARY INTAKE [None]
  - RENAL FAILURE [None]
  - RESTLESSNESS [None]
  - SHOCK [None]
